FAERS Safety Report 5822220-1 (Version None)
Quarter: 2008Q3

REPORT INFORMATION
  Report Type: 
  Country: None (occurrence: None)
  Receive Date: 20080723
  Receipt Date: 20080723
  Transmission Date: 20090109
  Serious: Yes (Life-Threatening)
  Sender: FDA-Public Use
  Company Number: None

PATIENT
  Age: 61 Year
  Sex: Female
  Weight: 61 kg

DRUGS (2)
  1. AMIODARONE HCL [Suspect]
     Indication: ATRIAL FIBRILLATION
     Dosage: 150MG ONCE IV BOLUS
     Route: 040
     Dates: start: 20080717, end: 20080717
  2. DEXTROSE 5% [Suspect]
     Indication: ATRIAL FIBRILLATION
     Dosage: 150ML ONCE IV BOLUS
     Route: 040
     Dates: start: 20080717, end: 20080717

REACTIONS (5)
  - CARDIO-RESPIRATORY ARREST [None]
  - CEREBRAL INFARCTION [None]
  - CONVULSION [None]
  - HAEMORRHAGE [None]
  - NO THERAPEUTIC RESPONSE [None]
